FAERS Safety Report 7478634-X (Version None)
Quarter: 2011Q2

REPORT INFORMATION
  Report Type: 
  Country: None (occurrence: None)
  Receive Date: 20110511
  Receipt Date: 20110511
  Transmission Date: 20111010
  Serious: Yes (Other)
  Sender: FDA-Public Use
  Company Number: None

PATIENT
  Age: 80 Year
  Sex: Female
  Weight: 120 kg

DRUGS (1)
  1. BSS [Suspect]
     Indication: EYE OPERATION
     Dosage: 3ML  ONE INTRACORNEAL
     Route: 021
     Dates: start: 20110307, end: 20110307

REACTIONS (2)
  - CORNEAL OEDEMA [None]
  - PRODUCT LABEL ISSUE [None]
